FAERS Safety Report 14663433 (Version 2)
Quarter: 2018Q2

REPORT INFORMATION
  Report Type: Spontaneous
  Country: US (occurrence: US)
  Receive Date: 20180321
  Receipt Date: 20180404
  Transmission Date: 20180711
  Serious: No
  Sender: FDA-Public Use
  Company Number: US-PFIZER INC-2018111900

PATIENT
  Age: 73 Year
  Sex: Female
  Weight: 83.91 kg

DRUGS (1)
  1. EUCRISA [Suspect]
     Active Substance: CRISABOROLE
     Indication: DERMATITIS
     Dosage: UNK, TWICE A DAY (APPLIED THIN LAYER TO THE UPPER CHEEK BELOW THE EYE BY NOSE)
     Route: 061
     Dates: start: 20180314, end: 20180316

REACTIONS (2)
  - Application site burn [Recovered/Resolved]
  - Application site erythema [Recovered/Resolved]

NARRATIVE: CASE EVENT DATE: 20180314
